FAERS Safety Report 17564019 (Version 1)
Quarter: 2020Q1

REPORT INFORMATION
  Report Type: Report from Study
  Country: US (occurrence: US)
  Receive Date: 20200320
  Receipt Date: 20200320
  Transmission Date: 20200409
  Serious: Yes (Hospitalization)
  Sender: FDA-Public Use
  Company Number: US-ROCHE-2565312

PATIENT
  Sex: Male

DRUGS (6)
  1. PACLITAXEL. [Suspect]
     Active Substance: PACLITAXEL
     Indication: POORLY DIFFERENTIATED THYROID CARCINOMA
     Route: 065
  2. COBIMETINIB. [Suspect]
     Active Substance: COBIMETINIB
     Indication: POORLY DIFFERENTIATED THYROID CARCINOMA
     Route: 048
     Dates: start: 20200304
  3. NAB-PACLITAXEL [Suspect]
     Active Substance: PACLITAXEL
     Indication: POORLY DIFFERENTIATED THYROID CARCINOMA
     Route: 065
  4. BEVACIZUMAB. [Suspect]
     Active Substance: BEVACIZUMAB
     Indication: POORLY DIFFERENTIATED THYROID CARCINOMA
     Route: 065
  5. VEMURAFENIB. [Suspect]
     Active Substance: VEMURAFENIB
     Indication: POORLY DIFFERENTIATED THYROID CARCINOMA
     Route: 048
     Dates: start: 20200304
  6. ATEZOLIZUMAB. [Suspect]
     Active Substance: ATEZOLIZUMAB
     Indication: POORLY DIFFERENTIATED THYROID CARCINOMA
     Route: 042
     Dates: start: 20200204

REACTIONS (2)
  - Pancreatitis acute [Unknown]
  - Pyrexia [Unknown]

NARRATIVE: CASE EVENT DATE: 20200307
